FAERS Safety Report 4408614-X (Version None)
Quarter: 2004Q3

REPORT INFORMATION
  Report Type: 
  Country: None (occurrence: None)
  Receive Date: 20040723
  Receipt Date: 20040712
  Transmission Date: 20050211
  Serious: No
  Sender: FDA-Public Use
  Company Number: 04P-167-0266866-00

PATIENT
  Age: 64 Year
  Sex: Male
  Weight: 60 kg

DRUGS (9)
  1. ULTANE [Suspect]
     Indication: GENERAL ANAESTHESIA
     Dosage: RESPIRATORY INHALATION
     Route: 055
     Dates: start: 20040618
  2. SINEMET [Concomitant]
  3. SELEGILINE HCL [Concomitant]
  4. PERGOLIDE MESYLATE [Concomitant]
  5. MIDAZOLAM [Concomitant]
  6. PROPOFOL [Concomitant]
  7. NITROUS OXIDE [Concomitant]
  8. OXYGEN [Concomitant]
  9. ALFENTANIL [Concomitant]

REACTIONS (2)
  - ANAESTHETIC COMPLICATION [None]
  - DYSTONIA [None]
